FAERS Safety Report 7783267-1 (Version None)
Quarter: 2011Q3

REPORT INFORMATION
  Report Type: 
  Country: None (occurrence: None)
  Receive Date: 20110927
  Receipt Date: 20110927
  Transmission Date: 20111222
  Serious: Yes (Hospitalization)
  Sender: FDA-Public Use
  Company Number: None

PATIENT
  Sex: Female
  Weight: 53 kg

DRUGS (8)
  1. ATIVAN [Concomitant]
  2. CALCIUM CARBONATE [Concomitant]
  3. ONDANSETRON [Suspect]
     Dosage: 8 MG DAYS 1-3 Q28 DAYS INTRAVENOUS (NOT OTHERWISE SPECIFIED)
     Route: 042
     Dates: start: 20110216, end: 20110622
  4. WELLBUTRIN [Concomitant]
  5. CLOTRIMAZOLE [Concomitant]
  6. DECITABINE [Suspect]
     Indication: ACUTE MYELOID LEUKAEMIA
     Dosage: 20MG/M2 OVER 1 HOUR DAYS 1-3 Q28 DAYS INTRAVENOUS (NOT OTHERWISE SPECIFIED)
     Route: 042
     Dates: start: 20110216, end: 20110622
  7. VITAMIN D [Concomitant]
  8. TRAZODONE HCL [Concomitant]

REACTIONS (2)
  - NEUTROPENIA [None]
  - PYREXIA [None]
